FAERS Safety Report 6649684-8 (Version None)
Quarter: 2010Q1

REPORT INFORMATION
  Report Type: 
  Country: None (occurrence: None)
  Receive Date: 20100324
  Receipt Date: 20090618
  Transmission Date: 20100710
  Serious: No
  Sender: FDA-Public Use
  Company Number: US-AMGEN-KDL352200

PATIENT
  Sex: Female

DRUGS (1)
  1. NEULASTA [Suspect]
     Indication: CHEMOTHERAPY
     Dates: start: 20050101

REACTIONS (1)
  - INJECTION SITE PAIN [None]
